FAERS Safety Report 21096567 (Version 1)
Quarter: 2022Q3

REPORT INFORMATION
  Report Type: Spontaneous
  Country: US (occurrence: US)
  Receive Date: 20220718
  Receipt Date: 20220718
  Transmission Date: 20221027
  Serious: Yes (Hospitalization, Other)
  Sender: FDA-Public Use
  Company Number: US-SABAL THERAPEUTICS LLC-2022-ATH-000008

PATIENT

DRUGS (12)
  1. OZOBAX [Suspect]
     Active Substance: BACLOFEN
     Indication: Ankylosing spondylitis
     Dosage: 10 MG, TID
     Route: 048
  2. OZOBAX [Suspect]
     Active Substance: BACLOFEN
     Indication: Back pain
     Dosage: 15 MG, TID
     Route: 048
  3. BACLOFEN [Suspect]
     Active Substance: BACLOFEN
     Indication: Ankylosing spondylitis
     Route: 037
  4. BACLOFEN [Suspect]
     Active Substance: BACLOFEN
     Indication: Back pain
  5. ZICONOTIDE [Concomitant]
     Active Substance: ZICONOTIDE
     Indication: Ankylosing spondylitis
     Route: 037
  6. ZICONOTIDE [Concomitant]
     Active Substance: ZICONOTIDE
     Indication: Back pain
  7. FENTANYL [Concomitant]
     Active Substance: FENTANYL
     Indication: Ankylosing spondylitis
     Route: 037
  8. FENTANYL [Concomitant]
     Active Substance: FENTANYL
     Indication: Back pain
  9. MIRTAZAPINE [Concomitant]
     Active Substance: MIRTAZAPINE
     Indication: Product used for unknown indication
  10. DULOXETINE [Concomitant]
     Active Substance: DULOXETINE
     Indication: Product used for unknown indication
  11. AMITRIPTYLINE [Concomitant]
     Active Substance: AMITRIPTYLINE
     Indication: Product used for unknown indication
  12. PREGABALIN [Concomitant]
     Active Substance: PREGABALIN
     Indication: Product used for unknown indication

REACTIONS (3)
  - Mental status changes [Recovered/Resolved]
  - Drug withdrawal syndrome [Recovered/Resolved]
  - Off label use [Unknown]
